FAERS Safety Report 18576782 (Version 2)
Quarter: 2023Q2

REPORT INFORMATION
  Report Type: Spontaneous
  Country: US (occurrence: US)
  Receive Date: 20201203
  Receipt Date: 20230628
  Transmission Date: 20230722
  Serious: Yes (Life-Threatening)
  Sender: FDA-Public Use
  Company Number: US-PFIZER INC-2020472643

PATIENT
  Age: 41 Year
  Sex: Female

DRUGS (2)
  1. FLUOROURACIL [Suspect]
     Active Substance: FLUOROURACIL
     Indication: Adenocarcinoma of colon
     Dosage: 450 MG/M2, CYCLIC FOR 5 DAYS
     Route: 042
  2. LEVAMISOLE HYDROCHLORIDE [Suspect]
     Active Substance: LEVAMISOLE HYDROCHLORIDE
     Indication: Adenocarcinoma of colon
     Dosage: 50 MG, 3X/DAY AS THE FIRST CYCLE
     Route: 048

REACTIONS (1)
  - Clostridium difficile colitis [Recovering/Resolving]
